FAERS Safety Report 22062129 (Version 1)
Quarter: 2023Q1

REPORT INFORMATION
  Report Type: Spontaneous
  Country: US (occurrence: US)
  Receive Date: 20230304
  Receipt Date: 20230304
  Transmission Date: 20230418
  Serious: Yes (Other)
  Sender: FDA-Public Use
  Company Number: US-002147023-NVSC2023US046386

PATIENT
  Sex: Male

DRUGS (1)
  1. TABRECTA [Suspect]
     Active Substance: CAPMATINIB
     Indication: Adenocarcinoma metastatic
     Dosage: UNK
     Route: 065
     Dates: start: 202003, end: 202005

REACTIONS (2)
  - Ototoxicity [Not Recovered/Not Resolved]
  - Oedema [Not Recovered/Not Resolved]
